FAERS Safety Report 12980016 (Version 1)
Quarter: 2016Q4

REPORT INFORMATION
  Report Type: Spontaneous
  Country: IT (occurrence: IT)
  Receive Date: 20161128
  Receipt Date: 20161128
  Transmission Date: 20170207
  Serious: Yes (Other)
  Sender: FDA-Public Use
  Company Number: IT-BAYER-2016-225397

PATIENT
  Age: 37 Year
  Sex: Male

DRUGS (3)
  1. OKI [Suspect]
     Active Substance: KETOPROFEN LYSINE
     Indication: SUICIDE ATTEMPT
     Dosage: 1840 MG, ONCE
     Route: 048
     Dates: start: 20161015, end: 20161015
  2. AULIN [Suspect]
     Active Substance: NIMESULIDE
     Indication: SUICIDE ATTEMPT
     Dosage: 200 MG, ONCE
     Route: 048
     Dates: start: 20161015, end: 20161015
  3. CLARITINE 10 MG [Suspect]
     Active Substance: LORATADINE
     Indication: SUICIDE ATTEMPT
     Dosage: 14 DF, ONCE
     Route: 048
     Dates: start: 20161015, end: 20161015

REACTIONS (3)
  - Drug abuse [Recovering/Resolving]
  - Toxicity to various agents [Recovering/Resolving]
  - Suicide attempt [Recovering/Resolving]

NARRATIVE: CASE EVENT DATE: 20161015
